FAERS Safety Report 7656750-7 (Version None)
Quarter: 2011Q3

REPORT INFORMATION
  Report Type: 
  Country: None (occurrence: None)
  Receive Date: 20110804
  Receipt Date: 20110803
  Transmission Date: 20111222
  Serious: Yes (Other)
  Sender: FDA-Public Use
  Company Number: US-PFIZER INC-2011177748

PATIENT
  Sex: Male
  Weight: 113 kg

DRUGS (4)
  1. LIPITOR [Suspect]
     Indication: BLOOD CHOLESTEROL INCREASED
     Dosage: 80 MG, 1X/DAY
     Route: 048
     Dates: start: 20090101
  2. ZOLPIDEM [Concomitant]
     Dosage: UNK
  3. LYRICA [Concomitant]
     Dosage: UNK
  4. DRONEDARONE [Concomitant]
     Dosage: UNK

REACTIONS (3)
  - MUSCLE SPASMS [None]
  - DEPRESSED MOOD [None]
  - PAIN [None]
